FAERS Safety Report 8304540-4 (Version None)
Quarter: 2012Q2

REPORT INFORMATION
  Report Type: 
  Country: None (occurrence: None)
  Receive Date: 20120423
  Receipt Date: 20120413
  Transmission Date: 20120825
  Serious: Yes (Other)
  Sender: FDA-Public Use
  Company Number: US-GLAXOSMITHKLINE-A0973607A

PATIENT
  Age: 27 Year
  Sex: Male

DRUGS (2)
  1. LAMICTAL [Suspect]
     Indication: CONVULSION
     Dosage: 200MG PER DAY
     Route: 048
  2. LAMICTAL [Concomitant]
     Dosage: 200MG TWICE PER DAY
     Route: 048

REACTIONS (4)
  - CONVULSION [None]
  - UNDERDOSE [None]
  - PARTIAL SEIZURES [None]
  - AURA [None]
